FAERS Safety Report 4482227-6 (Version None)
Quarter: 2004Q4

REPORT INFORMATION
  Report Type: 
  Country: None (occurrence: None)
  Receive Date: 20041020
  Receipt Date: 20041004
  Transmission Date: 20050328
  Serious: Yes (Hospitalization)
  Sender: FDA-Public Use
  Company Number: 2004AC00430

PATIENT
  Age: 43 Year
  Sex: Female

DRUGS (3)
  1. ARIMIDEX [Suspect]
     Indication: BREAST CANCER
     Dosage: 1 MG DAILY PO
     Route: 048
     Dates: start: 20040301
  2. EFFEXOR XR [Suspect]
     Indication: ANXIETY DISORDER
     Dosage: 225 MG DAILY
     Route: 048
     Dates: start: 19990101, end: 20040101
  3. POLARAMINE [Concomitant]

REACTIONS (2)
  - DRUG INTERACTION [None]
  - MANIA [None]
